FAERS Safety Report 16844880 (Version 1)
Quarter: 2019Q3

REPORT INFORMATION
  Report Type: Spontaneous
  Country: US (occurrence: US)
  Receive Date: 20190924
  Receipt Date: 20190924
  Transmission Date: 20191005
  Serious: No
  Sender: FDA-Public Use
  Company Number: US-PFIZER INC-2019409047

PATIENT
  Age: 60 Year
  Sex: Male

DRUGS (2)
  1. IBRANCE [Suspect]
     Active Substance: PALBOCICLIB
     Dosage: 125 MG, CYCLIC (ALTERNATE DAY T/TH/SAT/SUN)
     Dates: start: 20180521
  2. IBRANCE [Suspect]
     Active Substance: PALBOCICLIB
     Dosage: 100 MG, CYCLIC (ALTERNATE DAY M/W/F)
     Dates: start: 20180521

REACTIONS (1)
  - Pain [Unknown]
